FAERS Safety Report 18602611 (Version 1)
Quarter: 2020Q4

REPORT INFORMATION
  Report Type: Spontaneous
  Country: US (occurrence: US)
  Receive Date: 20201210
  Receipt Date: 20201210
  Transmission Date: 20210114
  Serious: No
  Sender: FDA-Public Use
  Company Number: US-PERRIGO-20US013434

PATIENT
  Age: 23 Year
  Sex: Female

DRUGS (3)
  1. ALBUTEROL SULFATE. [Suspect]
     Active Substance: ALBUTEROL SULFATE
     Dosage: 90 MCG, EVERY 4 HOURS PRN
     Route: 055
     Dates: start: 202002, end: 202008
  2. ALBUTEROL SULFATE. [Suspect]
     Active Substance: ALBUTEROL SULFATE
     Dosage: 90 MCG, EVERY 4 HOURS PRN
     Route: 055
     Dates: start: 20200804
  3. ALBUTEROL SULFATE. [Suspect]
     Active Substance: ALBUTEROL SULFATE
     Indication: ASTHMA
     Dosage: 90 MCG, EVERY 4 HOURS PRN
     Route: 055
     Dates: start: 202002, end: 202008

REACTIONS (1)
  - Drug administered in wrong device [Recovered/Resolved]

NARRATIVE: CASE EVENT DATE: 20200913
